FAERS Safety Report 7429387-2 (Version None)
Quarter: 2011Q2

REPORT INFORMATION
  Report Type: 
  Country: None (occurrence: None)
  Receive Date: 20110421
  Receipt Date: 20110419
  Transmission Date: 20111010
  Serious: Yes (Other)
  Sender: FDA-Public Use
  Company Number: ZA-PFIZER INC-2011087041

PATIENT
  Age: 45 Year
  Sex: Male

DRUGS (4)
  1. RIVOTRIL [Concomitant]
     Dosage: UNK
  2. EPILIM [Concomitant]
     Dosage: UNK
     Route: 048
  3. CHAMPIX [Suspect]
     Indication: SMOKING CESSATION THERAPY
     Dosage: 0.5 MG, 1X/DAY
     Route: 048
     Dates: start: 20110401, end: 20110401
  4. CHAMPIX [Suspect]
     Dosage: 0.5 MG, 2X/DAY
     Route: 048
     Dates: start: 20110401

REACTIONS (1)
  - EPILEPSY [None]
